FAERS Safety Report 14358683 (Version 4)
Quarter: 2018Q2

REPORT INFORMATION
  Report Type: Spontaneous
  Country: US (occurrence: US)
  Receive Date: 20180105
  Receipt Date: 20180531
  Transmission Date: 20180711
  Serious: Yes (Other)
  Sender: FDA-Public Use
  Company Number: US-SA-2017SA245516

PATIENT
  Age: 40 Year
  Sex: Female

DRUGS (2)
  1. DUPIXENT [Suspect]
     Active Substance: DUPILUMAB
     Dosage: 2 DF,1X
     Route: 058
     Dates: start: 201711, end: 201711
  2. DUPIXENT [Suspect]
     Active Substance: DUPILUMAB
     Dosage: 300 MG,QOW
     Route: 058
     Dates: start: 20171211

REACTIONS (7)
  - Myocardial infarction [Recovering/Resolving]
  - Eyelid thickening [Unknown]
  - Injection site rash [Unknown]
  - Eye discharge [Unknown]
  - Injection site urticaria [Unknown]
  - Meibomian gland dysfunction [Unknown]
  - Urticaria [Unknown]

NARRATIVE: CASE EVENT DATE: 201711
